FAERS Safety Report 6547509-2 (Version None)
Quarter: 2010Q1

REPORT INFORMATION
  Report Type: 
  Country: None (occurrence: None)
  Receive Date: 20100122
  Receipt Date: 20100111
  Transmission Date: 20100710
  Serious: Yes (Other)
  Sender: FDA-Public Use
  Company Number: US-JNJFOC-20100104693

PATIENT

DRUGS (2)
  1. EXTRA STRENGTH TYLENOL [Suspect]
     Route: 048
  2. EXTRA STRENGTH TYLENOL [Suspect]
     Indication: TOOTH DISORDER
     Dosage: FOR 3 DAYS
     Route: 048

REACTIONS (2)
  - HAEMORRHAGE [None]
  - PRODUCT QUALITY ISSUE [None]
